FAERS Safety Report 14123536 (Version 3)
Quarter: 2017Q4

REPORT INFORMATION
  Report Type: Spontaneous
  Country: BR (occurrence: BR)
  Receive Date: 20171025
  Receipt Date: 20171119
  Transmission Date: 20180321
  Serious: Yes (Death, Other)
  Sender: FDA-Public Use
  Company Number: BR-ALEXION-A201711292

PATIENT
  Age: 83 Year
  Sex: Male

DRUGS (2)
  1. SOLIRIS [Suspect]
     Active Substance: ECULIZUMAB
     Indication: PAROXYSMAL NOCTURNAL HAEMOGLOBINURIA
     Dosage: 600 MG, 4 WEEKS
     Route: 042
     Dates: start: 20140919, end: 20141010
  2. SOLIRIS [Suspect]
     Active Substance: ECULIZUMAB
     Dosage: 900 MG, Q2W
     Route: 042
     Dates: start: 20141024

REACTIONS (7)
  - Haematuria [Unknown]
  - Gait disturbance [Unknown]
  - Asthenia [Unknown]
  - Dyschezia [Unknown]
  - Anaemia [Unknown]
  - Pneumonia [Fatal]
  - Decreased appetite [Unknown]

NARRATIVE: CASE EVENT DATE: 20170930
